FAERS Safety Report 24344571 (Version 3)
Quarter: 2024Q4

REPORT INFORMATION
  Report Type: Report from Study
  Country: DE (occurrence: DE)
  Receive Date: 20240920
  Receipt Date: 20241212
  Transmission Date: 20250114
  Serious: Yes (Other)
  Sender: DAIICHI
  Company Number: DE-AstraZeneca-2024A206047

PATIENT
  Age: 72 Year
  Sex: Female
  Weight: 61 kg

DRUGS (6)
  1. ENHERTU [Suspect]
     Active Substance: FAM-TRASTUZUMAB DERUXTECAN-NXKI
     Indication: Breast cancer metastatic
     Dosage: 5.4 MILLIGRAM/KILOGRAM, UNK
     Route: 042
     Dates: start: 20240306, end: 20241107
  2. ELIQUIS [Concomitant]
     Active Substance: APIXABAN
     Indication: Product used for unknown indication
     Dosage: 2.5 MG, QD
     Route: 048
     Dates: start: 20231203
  3. DENOSUMAB [Concomitant]
     Active Substance: DENOSUMAB
     Indication: Product used for unknown indication
     Dosage: 120 MG
     Route: 058
     Dates: start: 20220215
  4. DEXTROSE MONOHYDRATE [Concomitant]
     Active Substance: DEXTROSE MONOHYDRATE
     Indication: Nausea
     Dosage: 500 MILLILITER
     Route: 065
     Dates: start: 20240306
  5. DEXAMETHASONE [Concomitant]
     Active Substance: DEXAMETHASONE
     Indication: Nausea
     Dosage: 8 MILLIGRAM
     Route: 042
     Dates: start: 20240306
  6. NETUPITANT [Concomitant]
     Active Substance: NETUPITANT
     Indication: Nausea
     Dosage: 300 MG
     Route: 042
     Dates: start: 20240306

REACTIONS (4)
  - Obstruction gastric [Recovered/Resolved]
  - Leukopenia [Recovered/Resolved]
  - Fatigue [Recovered/Resolved]
  - Alopecia [Recovered/Resolved]

NARRATIVE: CASE EVENT DATE: 20240424
